FAERS Safety Report 8965158 (Version 1)
Quarter: 2012Q4

REPORT INFORMATION
  Report Type: Report from Study
  Country: NL (occurrence: NL)
  Receive Date: 20121213
  Receipt Date: 20121213
  Transmission Date: 20130627
  Serious: Yes (Hospitalization)
  Sender: FDA-Public Use
  Company Number: NL-ROCHE-1165384

PATIENT
  Age: 66 Year
  Sex: Male

DRUGS (4)
  1. BEVACIZUMAB [Suspect]
     Indication: COLON CANCER
     Dosage: Date of last cycle:28/Mar/2012
     Route: 042
     Dates: start: 20110726
  2. BEVACIZUMAB [Suspect]
     Indication: RECTAL CANCER
  3. CAPECITABINE [Suspect]
     Indication: COLON CANCER
     Dosage: Date of last cycle :17/Apr/2012
     Route: 048
     Dates: start: 20110726
  4. CAPECITABINE [Suspect]
     Indication: RECTAL CANCER

REACTIONS (1)
  - Urinary tract obstruction [Recovered/Resolved]
